FAERS Safety Report 15703193 (Version 4)
Quarter: 2024Q1

REPORT INFORMATION
  Report Type: Spontaneous
  Country: IT (occurrence: IT)
  Receive Date: 20181210
  Receipt Date: 20240108
  Transmission Date: 20240410
  Serious: Yes (Death, Hospitalization, Other)
  Sender: FDA-Public Use
  Company Number: IT-AUROBINDO-AUR-APL-2018-059106

PATIENT
  Age: 80 Year
  Sex: Male

DRUGS (8)
  1. PRAMIPEXOLE [Suspect]
     Active Substance: PRAMIPEXOLE\PRAMIPEXOLE DIHYDROCHLORIDE
     Indication: Parkinson^s disease
     Dosage: 1.05 MILLIGRAM, DAILY
     Route: 065
  2. PRAMIPEXOLE [Suspect]
     Active Substance: PRAMIPEXOLE\PRAMIPEXOLE DIHYDROCHLORIDE
     Indication: On and off phenomenon
  3. SERTRALINE [Suspect]
     Active Substance: SERTRALINE HYDROCHLORIDE
     Indication: On and off phenomenon
     Dosage: 50 MILLIGRAM, DAILY
     Route: 065
  4. AMANTADINE [Suspect]
     Active Substance: AMANTADINE
     Indication: Parkinson^s disease
     Dosage: 200 MILLIGRAM, DAILY
     Route: 065
  5. AMANTADINE [Suspect]
     Active Substance: AMANTADINE
     Indication: On and off phenomenon
  6. CARBIDOPA\LEVODOPA [Suspect]
     Active Substance: CARBIDOPA\LEVODOPA
     Indication: On and off phenomenon
     Dosage: 700 MILLIGRAM, DAILY
     Route: 065
  7. CARBIDOPA\LEVODOPA [Suspect]
     Active Substance: CARBIDOPA\LEVODOPA
     Dosage: 1500 MILLIGRAM, ONCE A DAY
     Route: 065
  8. CARBIDOPA\LEVODOPA [Concomitant]
     Active Substance: CARBIDOPA\LEVODOPA
     Indication: On and off phenomenon
     Dosage: 1500 MILLIGRAM, DAILY
     Route: 065
     Dates: start: 2012

REACTIONS (10)
  - Multiple organ dysfunction syndrome [Fatal]
  - Dyskinesia hyperpyrexia syndrome [Fatal]
  - Renal failure [Unknown]
  - Pneumonia [Unknown]
  - Cholecystitis [Unknown]
  - Procalcitonin increased [Unknown]
  - C-reactive protein increased [Unknown]
  - Dyskinesia [Not Recovered/Not Resolved]
  - Confusional state [Unknown]
  - Lethargy [Unknown]

NARRATIVE: CASE EVENT DATE: 20150101
